FAERS Safety Report 17807246 (Version 1)
Quarter: 2020Q2

REPORT INFORMATION
  Report Type: Spontaneous
  Country: US (occurrence: US)
  Receive Date: 20200519
  Receipt Date: 20200519
  Transmission Date: 20200714
  Serious: No
  Sender: FDA-Public Use
  Company Number: None

PATIENT
  Age: 65 Year
  Sex: Female
  Weight: 58.06 kg

DRUGS (1)
  1. CIPROFLOXACIN OPHTHALMIC SOLUTION USP 0.3% AS BASE STERILE [Suspect]
     Active Substance: CIPROFLOXACIN HYDROCHLORIDE
     Indication: CORNEAL ABRASION
     Dosage: ?          QUANTITY:4 ;?
     Dates: start: 20200410, end: 20200412

REACTIONS (5)
  - Foreign body sensation in eyes [None]
  - Instillation site pain [None]
  - Instillation site reaction [None]
  - Vision blurred [None]
  - Ocular discomfort [None]

NARRATIVE: CASE EVENT DATE: 20200411
